FAERS Safety Report 6963653-X (Version None)
Quarter: 2010Q3

REPORT INFORMATION
  Report Type: 
  Country: None (occurrence: None)
  Receive Date: 20100902
  Receipt Date: 20100825
  Transmission Date: 20110219
  Serious: Yes (Life-Threatening)
  Sender: FDA-Public Use
  Company Number: PL-ABBOTT-10P-129-0666389-00

PATIENT
  Age: 28 Year
  Sex: Male

DRUGS (3)
  1. DEPAKENE [Suspect]
     Indication: BIPOLAR DISORDER
     Route: 048
     Dates: start: 20091013, end: 20100312
  2. QUETIAPINE [Suspect]
     Indication: BIPOLAR DISORDER
     Route: 048
     Dates: start: 20100212, end: 20100313
  3. LAMOTRIGINE [Suspect]
     Indication: BIPOLAR DISORDER
     Route: 048
     Dates: start: 20100223, end: 20100313

REACTIONS (4)
  - CONJUNCTIVITIS [None]
  - OEDEMA MUCOSAL [None]
  - RASH MACULAR [None]
  - STEVENS-JOHNSON SYNDROME [None]
